FAERS Safety Report 5872191-7 (Version None)
Quarter: 2008Q3

REPORT INFORMATION
  Report Type: 
  Country: None (occurrence: None)
  Receive Date: 20080905
  Receipt Date: 20080813
  Transmission Date: 20090109
  Serious: Yes (Hospitalization)
  Sender: FDA-Public Use
  Company Number: IT-BAYER-200825413GPV

PATIENT
  Age: 67 Year
  Sex: Female

DRUGS (6)
  1. ASPIRIN [Suspect]
     Indication: CORONARY ANGIOPLASTY
     Dosage: TOTAL DAILY DOSE: 100 MG  UNIT DOSE: 100 MG
     Route: 048
     Dates: start: 20021104
  2. PLAVIX [Suspect]
     Indication: CORONARY ANGIOPLASTY
     Dosage: TOTAL DAILY DOSE: 75 MG  UNIT DOSE: 75 MG
     Route: 048
     Dates: start: 20080801
  3. VYTORIN [Suspect]
     Indication: CORONARY ANGIOPLASTY
     Dosage: TOTAL DAILY DOSE: 10 MG  UNIT DOSE: 10 MG
     Route: 048
     Dates: start: 20080727, end: 20080810
  4. LANSOPRAZOLE [Concomitant]
     Indication: DRUG USE FOR UNKNOWN INDICATION
     Route: 048
     Dates: start: 20080725
  5. ALLOPURINOL [Concomitant]
     Indication: DRUG USE FOR UNKNOWN INDICATION
     Route: 048
     Dates: start: 20080410
  6. ENALAPRIL MALEATE [Concomitant]
     Indication: DRUG USE FOR UNKNOWN INDICATION
     Route: 048
     Dates: start: 20070503

REACTIONS (3)
  - DIARRHOEA [None]
  - HYPERAMYLASAEMIA [None]
  - MELAENA [None]
